FAERS Safety Report 7272911-3 (Version None)
Quarter: 2011Q1

REPORT INFORMATION
  Report Type: 
  Country: None (occurrence: None)
  Receive Date: 20110128
  Receipt Date: 20110121
  Transmission Date: 20110831
  Serious: Yes (Other)
  Sender: FDA-Public Use
  Company Number: NL-ACCORD-007953

PATIENT
  Age: 70 Year
  Sex: Male
  Weight: 75 kg

DRUGS (4)
  1. ASPIRIN [Concomitant]
  2. METOPROLOL (METOPROLOL) [Concomitant]
  3. SIMVASTATIN [Suspect]
     Indication: HYPERCHOLESTEROLAEMIA
     Dosage: 10.00-MG-1.00 PER-1.0 DAYS/ ORAL
     Route: 048
  4. LITHIUM CARBONATE [Concomitant]

REACTIONS (3)
  - CLUSTER HEADACHE [None]
  - PRODUCT SUBSTITUTION ISSUE [None]
  - CONDITION AGGRAVATED [None]
